FAERS Safety Report 21617143 (Version 1)
Quarter: 2022Q4

REPORT INFORMATION
  Report Type: Report from Study
  Country: US (occurrence: US)
  Receive Date: 20221118
  Receipt Date: 20221118
  Transmission Date: 20230113
  Serious: Yes (Death, Other)
  Sender: FDA-Public Use
  Company Number: US-GILEAD-2022-0605627

PATIENT
  Age: 57 Year
  Sex: Male

DRUGS (1)
  1. EMTRICITABINE [Suspect]
     Active Substance: EMTRICITABINE
     Indication: HIV infection
     Dosage: 200 MG, QD
     Route: 048
     Dates: end: 20220823

REACTIONS (1)
  - Death [Fatal]

NARRATIVE: CASE EVENT DATE: 20220823
